FAERS Safety Report 6260191-7 (Version None)
Quarter: 2009Q3

REPORT INFORMATION
  Report Type: 
  Country: None (occurrence: None)
  Receive Date: 20090708
  Receipt Date: 20090701
  Transmission Date: 20100115
  Serious: Yes (Hospitalization)
  Sender: FDA-Public Use
  Company Number: B0562520A

PATIENT
  Sex: Male

DRUGS (1)
  1. SERETIDE [Suspect]
     Indication: ASTHMA
     Route: 055
     Dates: start: 20090101, end: 20090109

REACTIONS (5)
  - ATRIAL FIBRILLATION [None]
  - BRONCHOSTENOSIS [None]
  - DYSPNOEA [None]
  - OVERDOSE [None]
  - PALPITATIONS [None]
